FAERS Safety Report 20072521 (Version 1)
Quarter: 2021Q4

REPORT INFORMATION
  Report Type: Spontaneous
  Country: US (occurrence: None)
  Receive Date: 20211116
  Receipt Date: 20211116
  Transmission Date: 20220303
  Serious: Yes (Other)
  Sender: FDA-Public Use
  Company Number: US-ROCHE-2954975

PATIENT
  Age: 68 Year
  Sex: Female

DRUGS (5)
  1. RITUXIMAB [Suspect]
     Active Substance: RITUXIMAB
     Indication: B-cell small lymphocytic lymphoma
     Route: 065
  2. VENETOCLAX [Suspect]
     Active Substance: VENETOCLAX
     Indication: B-cell prolymphocytic leukaemia
     Route: 065
  3. VENETOCLAX [Suspect]
     Active Substance: VENETOCLAX
     Route: 065
  4. IBRUTINIB [Suspect]
     Active Substance: IBRUTINIB
     Indication: B-cell prolymphocytic leukaemia
     Route: 048
  5. IBRUTINIB [Suspect]
     Active Substance: IBRUTINIB
     Route: 048

REACTIONS (8)
  - Arthralgia [Unknown]
  - Myalgia [Unknown]
  - Thrombocytopenia [Unknown]
  - Off label use [Unknown]
  - Off label use [Unknown]
  - White blood cell count decreased [Unknown]
  - Leukocytosis [Unknown]
  - Lymphadenopathy [Unknown]
